FAERS Safety Report 8954576 (Version 2)
Quarter: 2013Q2

REPORT INFORMATION
  Report Type: Spontaneous
  Country: DE (occurrence: None)
  Receive Date: 20121130
  Receipt Date: 20130408
  Transmission Date: 20140414
  Serious: Yes (Life-Threatening)
  Sender: FDA-Public Use
  Company Number: FK201203433

PATIENT
  Age: 45 Year
  Sex: Male
  Weight: 140 kg

DRUGS (1)
  1. PROPOFOL [Suspect]
     Indication: SEDATION
     Dosage: UP TO 0.8MG/KG/BW/H, INTRAVENOUS DRIP
     Dates: start: 20121023, end: 20121025

REACTIONS (8)
  - Rhabdomyolysis [None]
  - Renal failure acute [None]
  - Liver disorder [None]
  - Acute hepatic failure [None]
  - Biliary cast syndrome [None]
  - Propofol infusion syndrome [None]
  - Dialysis [None]
  - Cardiovascular disorder [None]
